FAERS Safety Report 7202594-X (Version None)
Quarter: 2010Q4

REPORT INFORMATION
  Report Type: 
  Country: None (occurrence: None)
  Receive Date: 20101229
  Receipt Date: 20101221
  Transmission Date: 20110411
  Serious: Yes (Other)
  Sender: FDA-Public Use
  Company Number: FR-B.I. PHARMACEUTICALS,INC./RIDGEFIELD-2010-FF-01048FF

PATIENT
  Sex: Male

DRUGS (5)
  1. SIFROL [Suspect]
     Indication: PARKINSON'S DISEASE
     Dosage: 0.18 MG
     Route: 048
     Dates: start: 20101001, end: 20101001
  2. BIPRETERAX [Concomitant]
  3. SEREVENT [Concomitant]
  4. KARDEGIC [Concomitant]
  5. VENTOLINE ALD [Concomitant]

REACTIONS (5)
  - ABASIA [None]
  - HEADACHE [None]
  - HYPOTONIA [None]
  - NAUSEA [None]
  - VOMITING [None]
